FAERS Safety Report 6555012-9 (Version None)
Quarter: 2010Q1

REPORT INFORMATION
  Report Type: 
  Country: None (occurrence: None)
  Receive Date: 20100126
  Receipt Date: 20100126
  Transmission Date: 20100710
  Serious: Yes (Disabling)
  Sender: FDA-Public Use
  Company Number: None

PATIENT
  Age: 61 Year
  Sex: Female
  Weight: 58.2 kg

DRUGS (3)
  1. BEVACIZUMAB 15 MG/KG GENENTECH [Suspect]
     Indication: OVARIAN CANCER
     Dosage: 873MG Q 21 DAYS 041
     Dates: start: 20091116, end: 20091228
  2. CARBOPLATIN [Concomitant]
  3. TAXOL [Concomitant]

REACTIONS (4)
  - CELLULITIS [None]
  - IMPAIRED HEALING [None]
  - NO THERAPEUTIC RESPONSE [None]
  - SQUAMOUS CELL CARCINOMA [None]
